FAERS Safety Report 8241304-4 (Version None)
Quarter: 2012Q1

REPORT INFORMATION
  Report Type: 
  Country: None (occurrence: None)
  Receive Date: 20120328
  Receipt Date: 20120326
  Transmission Date: 20120608
  Serious: Yes (Hospitalization)
  Sender: FDA-Public Use
  Company Number: JP-B.I. PHARMACEUTICALS,INC./RIDGEFIELD-2011-BP-26786NB

PATIENT
  Sex: Female
  Weight: 34 kg

DRUGS (16)
  1. PRADAXA [Suspect]
     Indication: ATRIAL FIBRILLATION
     Dosage: 220 MG
     Route: 048
     Dates: start: 20110614, end: 20110916
  2. SELBEX [Concomitant]
     Dosage: 150 MG
     Route: 048
     Dates: end: 20110916
  3. CINAL [Concomitant]
     Route: 048
     Dates: end: 20110916
  4. CINAL [Concomitant]
     Dosage: 3 G
     Route: 048
     Dates: end: 20110916
  5. ALOSENN [Concomitant]
     Route: 065
     Dates: end: 20110916
  6. LANSOPRAZOLE [Concomitant]
     Dosage: 15 MG
     Route: 048
     Dates: end: 20110916
  7. ALDACTONE [Concomitant]
     Indication: CARDIAC FAILURE
     Dosage: 25 MG
     Route: 048
     Dates: end: 20110916
  8. BIO-THREE [Concomitant]
     Route: 048
     Dates: end: 20110916
  9. MINITRO [Concomitant]
     Route: 065
     Dates: end: 20110916
  10. GOODMIN [Concomitant]
     Route: 065
     Dates: end: 20110916
  11. PANCREAZE [Concomitant]
     Route: 048
     Dates: end: 20110916
  12. VESICARE OD [Concomitant]
     Indication: HYPERTONIC BLADDER
     Dosage: 10 MG
     Route: 048
     Dates: end: 20110916
  13. PRADAXA [Suspect]
     Indication: TACHYCARDIA
     Dosage: 150 MG
     Route: 048
     Dates: start: 20110818
  14. DAI-KENCHU-TO [Concomitant]
     Route: 065
     Dates: end: 20110916
  15. DIGOXIN [Concomitant]
     Dosage: 0.125 MG
     Route: 065
     Dates: end: 20110916
  16. LENDORMIN [Concomitant]
     Indication: INSOMNIA
     Dosage: 0.25 MG
     Route: 048
     Dates: end: 20110916

REACTIONS (3)
  - UPPER GASTROINTESTINAL HAEMORRHAGE [None]
  - ACTIVATED PARTIAL THROMBOPLASTIN TIME PROLONGED [None]
  - PNEUMONIA ASPIRATION [None]
